FAERS Safety Report 9532634 (Version 1)
Quarter: 2013Q3

REPORT INFORMATION
  Report Type: Spontaneous
  Country: US (occurrence: US)
  Receive Date: 20130918
  Receipt Date: 20130918
  Transmission Date: 20140515
  Serious: Yes (Hospitalization)
  Sender: FDA-Public Use
  Company Number: US-NAPPMUNDI-USA-2011-0075997

PATIENT
  Sex: Female

DRUGS (2)
  1. NARCOTICS [Concomitant]
     Indication: PRODUCT USED FOR UNKNOWN INDICATION
  2. BUTRANS [Suspect]
     Indication: PRODUCT USED FOR UNKNOWN INDICATION

REACTIONS (1)
  - Respiratory depression [Unknown]
